FAERS Safety Report 6081179-5 (Version None)
Quarter: 2009Q1

REPORT INFORMATION
  Report Type: 
  Country: None (occurrence: None)
  Receive Date: 20090213
  Receipt Date: 20090128
  Transmission Date: 20090719
  Serious: Yes (Hospitalization)
  Sender: FDA-Public Use
  Company Number: SPV1-2009-00208

PATIENT
  Age: 87 Year
  Sex: Male

DRUGS (15)
  1. MIDODRINE HYDROCHLORIDE [Suspect]
     Dosage: 2.5 MG, 3X/DAY:TID, ORAL
     Route: 048
     Dates: start: 20080301, end: 20081102
  2. VIDORA /00444201/(INDORAMIN) UNKNOWN [Suspect]
     Dosage: 25 MG, 3X/DAY:TID, ORAL; 50 MG DAILY, ORAL
     Route: 048
     Dates: start: 20080701, end: 20081102
  3. VIDORA /00444201/(INDORAMIN) UNKNOWN [Suspect]
     Dosage: 25 MG, 3X/DAY:TID, ORAL; 50 MG DAILY, ORAL
     Route: 048
     Dates: start: 20090115
  4. PROSCAR [Suspect]
     Dosage: 5 MG, 1X/DAY:QD, ORAL
     Route: 048
     Dates: start: 19880101, end: 20081030
  5. VOLTAREN [Suspect]
     Dosage: 75 MG, 2X/DAY:BID, ORAL
     Route: 048
     Dates: start: 20070101, end: 20081102
  6. XANAX [Suspect]
     Dosage: 0.25 MG, 1X/DAY:QD, ORAL
     Route: 048
     Dates: start: 19880101
  7. BUFLOMEDIL(BUFLOMEDIL) UNKNOWN [Suspect]
     Dosage: 150 MG, 3X/DAY:TID, ORAL
     Route: 048
     Dates: start: 20080301
  8. SEGLOR (DIHYDROERGOTAMINE MESILATE) UNKNOWN [Concomitant]
  9. TERCIAN /00759301/ (CYAMEMAZINE) UNKNOWN [Concomitant]
  10. OMEPRAZOLE [Concomitant]
  11. CLARADOL CAFFEINE (CAFFEINE, PARACETAMOL) UNKNOWN [Concomitant]
  12. SPIFEN (IBUPROFEN) UNKNOWN [Concomitant]
  13. VITAMIN B12 /00056201/ (CYANOCOBALAMIN) INJECTION [Concomitant]
  14. FORLAX (MACROGOL) UNKNOWN [Concomitant]
  15. TRIDESONIT (DESONIDE) UNKNOWN [Concomitant]

REACTIONS (8)
  - BLOOD PRESSURE SYSTOLIC INCREASED [None]
  - BUNDLE BRANCH BLOCK LEFT [None]
  - BUNDLE BRANCH BLOCK RIGHT [None]
  - CONDITION AGGRAVATED [None]
  - MALAISE [None]
  - MIGRAINE [None]
  - ORTHOSTATIC HYPOTENSION [None]
  - REVERSIBLE ISCHAEMIC NEUROLOGICAL DEFICIT [None]
